FAERS Safety Report 7352073-4 (Version None)
Quarter: 2011Q1

REPORT INFORMATION
  Report Type: 
  Country: None (occurrence: None)
  Receive Date: 20110309
  Receipt Date: 20110309
  Transmission Date: 20110831
  Serious: Yes (Hospitalization)
  Sender: FDA-Public Use
  Company Number: None

PATIENT
  Age: 46 Year
  Sex: Male
  Weight: 90 kg

DRUGS (1)
  1. HALOPERIDOL [Suspect]
     Indication: CONVULSION
     Dosage: 10 MG HS PO
     Route: 048
     Dates: start: 20110305, end: 20110307

REACTIONS (7)
  - ANTICONVULSANT DRUG LEVEL DECREASED [None]
  - MUSCLE SPASMS [None]
  - CONVULSION [None]
  - CHILLS [None]
  - DRUG HYPERSENSITIVITY [None]
  - DYSTONIA [None]
  - MUSCLE TWITCHING [None]
